FAERS Safety Report 8772671 (Version 1)
Quarter: 2012Q4

REPORT INFORMATION
  Report Type: 
  Country: BE (occurrence: BE)
  Receive Date: 20120905
  Receipt Date: 20120905
  Transmission Date: 20130627
  Serious: Yes (Death, Other)
  Sender: FDA-Public Use
  Company Number: BE-BAYER-2012-091483

PATIENT
  Age: 39 Year
  Sex: Male
  Weight: 78 kg

DRUGS (7)
  1. PROFLOX [Suspect]
     Indication: RESPIRATORY TRACT INFECTION
     Dosage: 400 mg, QD
     Route: 048
  2. INDERAL [Concomitant]
     Indication: MIGRAINE
     Dosage: 40 mg, QD
  3. PANTOPRAZOLE [Concomitant]
     Indication: ABDOMINAL DISCOMFORT
     Dosage: 40 mg, once or twice
  4. NASONEX [Concomitant]
     Indication: SINUS DISORDER
     Route: 045
  5. FLIXONASE [Concomitant]
     Indication: SINUS DISORDER
     Dosage: UNK
     Dates: start: 20120507, end: 20120520
  6. PREDNISOLONE [Concomitant]
     Dosage: 8 mg, UNK
     Dates: start: 20120529, end: 20120529
  7. ACETYLCYSTEINE [Concomitant]
     Indication: SECRETION DISCHARGE
     Dosage: 600 mg, once or twice daily
     Dates: start: 20120526, end: 20120529

REACTIONS (5)
  - Myocardial infarction [Fatal]
  - Palpitations [Not Recovered/Not Resolved]
  - Loss of consciousness [Not Recovered/Not Resolved]
  - Coma [Not Recovered/Not Resolved]
  - Epilepsy [Not Recovered/Not Resolved]
